FAERS Safety Report 9910139 (Version 3)
Quarter: 2015Q3

REPORT INFORMATION
  Report Type: Spontaneous
  Country: US (occurrence: US)
  Receive Date: 20140219
  Receipt Date: 20150812
  Transmission Date: 20151125
  Serious: No
  Sender: FDA-Public Use
  Company Number: US-GILEAD-2012-0056662

PATIENT
  Age: 35 Year
  Sex: Female

DRUGS (7)
  1. LETAIRIS [Suspect]
     Active Substance: AMBRISENTAN
     Indication: SCLERODERMA
  2. FOLIC ACID. [Concomitant]
     Active Substance: FOLIC ACID
     Dosage: UNK
     Dates: start: 20120522
  3. LANSOPRAZOLE. [Concomitant]
     Active Substance: LANSOPRAZOLE
     Dosage: UNK
     Dates: start: 20120522
  4. METHOTREXATE [Concomitant]
     Active Substance: METHOTREXATE
     Dosage: UNK
     Dates: start: 20120522
  5. NEXIUM [Concomitant]
     Active Substance: ESOMEPRAZOLE MAGNESIUM
     Dosage: UNK
     Dates: start: 20120522
  6. PREDNISONE. [Concomitant]
     Active Substance: PREDNISONE
     Dosage: UNK
     Dates: start: 20110927
  7. LETAIRIS [Suspect]
     Active Substance: AMBRISENTAN
     Indication: PULMONARY HYPERTENSION
     Dosage: 10 MG, UNK
     Route: 048
     Dates: start: 20110920, end: 20120607

REACTIONS (3)
  - Rash [Recovered/Resolved]
  - Skin ulcer [Recovered/Resolved]
  - Raynaud^s phenomenon [Recovered/Resolved]
